FAERS Safety Report 5782050-6 (Version None)
Quarter: 2008Q2

REPORT INFORMATION
  Report Type: 
  Country: None (occurrence: None)
  Receive Date: 20080623
  Receipt Date: 20080618
  Transmission Date: 20081010
  Serious: Yes (Other)
  Sender: FDA-Public Use
  Company Number: US-ASTRAZENECA-2008UW08899

PATIENT
  Age: 508 Month
  Sex: Male
  Weight: 79.5 kg

DRUGS (7)
  1. SEROQUEL [Suspect]
     Indication: BIPOLAR DISORDER
     Dosage: VARIOUS (INCLUDING BUT NOT LIMITED TO 25 MG; 50 MG)
     Route: 048
     Dates: start: 20060701, end: 20061201
  2. SEROQUEL [Suspect]
     Indication: DEPRESSION
     Dosage: VARIOUS (INCLUDING BUT NOT LIMITED TO 25 MG; 50 MG)
     Route: 048
     Dates: start: 20060701, end: 20061201
  3. SEROQUEL [Suspect]
     Indication: SLEEP DISORDER
     Dosage: VARIOUS (INCLUDING BUT NOT LIMITED TO 25 MG; 50 MG)
     Route: 048
     Dates: start: 20060701, end: 20061201
  4. ABILIFY [Concomitant]
     Dates: start: 20080401
  5. THORAZINE [Concomitant]
     Dates: start: 20060101
  6. ZOLOFT [Concomitant]
     Dosage: VARIOUS, INCLUDING BUT NOT LIMITED TO 150 MG
     Dates: start: 19890101
  7. TRAZODONE HCL [Concomitant]
     Dosage: VARIOUS DOSES, INCLUDING BUT NOT LIMITED TO 100 MG
     Dates: start: 19890101

REACTIONS (4)
  - DIABETES MELLITUS [None]
  - HEPATIC CIRRHOSIS [None]
  - PANCREATITIS [None]
  - SUICIDE ATTEMPT [None]
